FAERS Safety Report 5492915-0 (Version None)
Quarter: 2007Q4

REPORT INFORMATION
  Report Type: 
  Country: None (occurrence: None)
  Receive Date: 20071023
  Receipt Date: 20071018
  Transmission Date: 20080405
  Serious: Yes (Hospitalization)
  Sender: FDA-Public Use
  Company Number: DE-BAYER-200610682BVD

PATIENT
  Age: 63 Year
  Sex: Male
  Weight: 75 kg

DRUGS (2)
  1. VARDENAFIL [Suspect]
     Indication: ERECTILE DYSFUNCTION
     Route: 048
     Dates: start: 20060208, end: 20060521
  2. ASPIRIN [Concomitant]
     Route: 048
     Dates: start: 20050524

REACTIONS (2)
  - GLOBAL AMNESIA [None]
  - HYPERTENSIVE CRISIS [None]
